FAERS Safety Report 12137181 (Version 3)
Quarter: 2016Q1

REPORT INFORMATION
  Report Type: Spontaneous
  Country: IT (occurrence: IT)
  Receive Date: 20160302
  Receipt Date: 20160323
  Transmission Date: 20160526
  Serious: Yes (Other)
  Sender: FDA-Public Use
  Company Number: IT-CONCORDIA PHARMACEUTICALS INC.-CO-UX-IT-2016-009

PATIENT
  Age: 67 Year
  Sex: Male

DRUGS (2)
  1. ALFUZOSIN HYDROCHLORIDE. [Suspect]
     Active Substance: ALFUZOSIN HYDROCHLORIDE
     Indication: BENIGN PROSTATIC HYPERPLASIA
     Route: 048
     Dates: start: 20160120, end: 20160213
  2. PROXANA PLUS [Concomitant]

REACTIONS (2)
  - Supraventricular tachycardia [None]
  - Chest pain [None]

NARRATIVE: CASE EVENT DATE: 20160213
